FAERS Safety Report 24719814 (Version 1)
Quarter: 2024Q4

REPORT INFORMATION
  Report Type: Spontaneous
  Country: IT (occurrence: IT)
  Receive Date: 20241211
  Receipt Date: 20241211
  Transmission Date: 20250115
  Serious: Yes (Other)
  Sender: ALEXION PHARMACEUTICALS
  Company Number: None

PATIENT
  Age: 42 Year
  Weight: 90 kg

DRUGS (28)
  1. FASLODEX [Suspect]
     Active Substance: FULVESTRANT
     Indication: Breast cancer
     Dosage: FULVESTRANT 250 MG 1 FL IN GLUTEO DI DX E 1 FL IN GLUTEO DI SX  GIORNO 1, 14 E 28
  2. FASLODEX [Suspect]
     Active Substance: FULVESTRANT
     Dosage: FULVESTRANT 250 MG 1 FL IN GLUTEO DI DX E 1 FL IN GLUTEO DI SX  GIORNO 1, 14 E 28
     Route: 030
  3. FASLODEX [Suspect]
     Active Substance: FULVESTRANT
     Dosage: FULVESTRANT 250 MG 1 FL IN GLUTEO DI DX E 1 FL IN GLUTEO DI SX  GIORNO 1, 14 E 28
  4. FASLODEX [Suspect]
     Active Substance: FULVESTRANT
     Dosage: FULVESTRANT 250 MG 1 FL IN GLUTEO DI DX E 1 FL IN GLUTEO DI SX  GIORNO 1, 14 E 28
     Route: 030
  5. Daflon [Concomitant]
     Dosage: 500 MG
     Route: 048
  6. Daflon [Concomitant]
     Dosage: 500 MG
  7. Decapeptyl [Concomitant]
     Indication: Breast cancer
     Dosage: 3,75 MG/2 ML
     Route: 030
  8. Decapeptyl [Concomitant]
     Dosage: 3,75 MG/2 ML
  9. Decapeptyl [Concomitant]
     Indication: Breast cancer
     Dosage: 11,25 MG/2 ML
     Route: 030
  10. Decapeptyl [Concomitant]
     Dosage: 11,25 MG/2 ML
  11. TAMOXIFEN [Concomitant]
     Active Substance: TAMOXIFEN
     Dosage: TAMOXIFENE CPR
     Route: 048
  12. TAMOXIFEN [Concomitant]
     Active Substance: TAMOXIFEN
     Dosage: TAMOXIFENE CPR
  13. AXELTA [Concomitant]
     Indication: Breast cancer
     Dosage: 25 MG
     Route: 048
  14. AXELTA [Concomitant]
     Dosage: 25 MG
  15. LASIX [Concomitant]
     Active Substance: FUROSEMIDE
     Indication: Blood pressure increased
     Dosage: 25 MG
     Route: 048
  16. LASIX [Concomitant]
     Active Substance: FUROSEMIDE
     Dosage: 25 MG
  17. TACHIPIRINA [Concomitant]
     Active Substance: ACETAMINOPHEN
     Indication: Pyrexia
     Dosage: TACHIPIRINA CPR
     Route: 048
  18. TACHIPIRINA [Concomitant]
     Active Substance: ACETAMINOPHEN
     Dosage: TACHIPIRINA CPR
  19. Tad [Concomitant]
     Dosage: TAD FIALE, 1 FL.
     Route: 030
  20. Tad [Concomitant]
     Dosage: TAD FIALE, 1 FL.
  21. ABEMACICLIB [Concomitant]
     Active Substance: ABEMACICLIB
     Dosage: 150 MG
     Route: 048
  22. ABEMACICLIB [Concomitant]
     Active Substance: ABEMACICLIB
     Dosage: 150 MG
  23. ABEMACICLIB [Concomitant]
     Active Substance: ABEMACICLIB
     Dosage: 100 MG
     Route: 048
  24. ABEMACICLIB [Concomitant]
     Active Substance: ABEMACICLIB
     Dosage: 100 MG
  25. ELIQUIS [Concomitant]
     Active Substance: APIXABAN
     Dosage: 2,5 MG
     Route: 048
  26. ELIQUIS [Concomitant]
     Active Substance: APIXABAN
     Dosage: 2,5 MG
  27. ELIQUIS [Concomitant]
     Active Substance: APIXABAN
     Dosage: 5 MG
     Route: 048
  28. ELIQUIS [Concomitant]
     Active Substance: APIXABAN
     Dosage: 5 MG

REACTIONS (8)
  - Oropharyngeal discomfort [Recovered/Resolved]
  - Nausea [Recovered/Resolved]
  - Syncope [Recovered/Resolved]
  - Loss of consciousness [Recovered/Resolved]
  - Feeling cold [Recovered/Resolved]
  - Flushing [Recovered/Resolved]
  - Blood pressure increased [Recovered/Resolved]
  - Pyrexia [Recovered/Resolved]
